FAERS Safety Report 9631078 (Version 1)
Quarter: 2013Q4

REPORT INFORMATION
  Report Type: Spontaneous
  Country: IT (occurrence: None)
  Receive Date: 20131015
  Receipt Date: 20131015
  Transmission Date: 20140711
  Serious: Yes (Other)
  Sender: FDA-Public Use
  Company Number: 2013P1019921

PATIENT
  Age: 56 Year
  Sex: Male

DRUGS (8)
  1. ISONIAZID [Suspect]
     Indication: TUBERCULOUS PLEURISY
     Dates: start: 201101
  2. ETHAMBUTOL [Concomitant]
  3. RIFAMPICIN [Concomitant]
  4. LACTULOSE [Concomitant]
  5. DELORAZEPAM [Concomitant]
  6. FOLINIC ACID [Concomitant]
  7. VITAMIN B12 [Concomitant]
  8. THIAMINE [Concomitant]

REACTIONS (7)
  - Psychomotor hyperactivity [None]
  - Confusional state [None]
  - Disorientation [None]
  - Hallucination [None]
  - Delusion [None]
  - Delirium [None]
  - Hypophagia [None]
